FAERS Safety Report 20618057 (Version 3)
Quarter: 2022Q2

REPORT INFORMATION
  Report Type: Spontaneous
  Country: US (occurrence: US)
  Receive Date: 20220321
  Receipt Date: 20220503
  Transmission Date: 20220721
  Serious: Yes (Hospitalization)
  Sender: FDA-Public Use
  Company Number: US-PFIZER INC-202101603495

PATIENT
  Age: 53 Year
  Sex: Male

DRUGS (2)
  1. SUTENT [Suspect]
     Active Substance: SUNITINIB MALATE
     Indication: Meningioma
     Dosage: 37.5 MG, CYCLIC, 1 DAILY FOR 28D
  2. SUTENT [Suspect]
     Active Substance: SUNITINIB MALATE
     Indication: Meningeal neoplasm
     Dosage: 50 MG

REACTIONS (7)
  - Fall [Unknown]
  - Limb injury [Unknown]
  - Off label use [Unknown]
  - Product dose omission issue [Unknown]
  - Joint lock [Unknown]
  - Fatigue [Unknown]
  - Hypersomnia [Unknown]

NARRATIVE: CASE EVENT DATE: 20220216
